FAERS Safety Report 12921080 (Version 1)
Quarter: 2016Q4

REPORT INFORMATION
  Report Type: Spontaneous
  Country: US (occurrence: US)
  Receive Date: 20161107
  Receipt Date: 20161107
  Transmission Date: 20170207
  Serious: Yes (Hospitalization)
  Sender: FDA-Public Use
  Company Number: US-GUERBET LLC-1059296

PATIENT
  Age: 57 Year
  Sex: Male

DRUGS (3)
  1. LIPIODOL [Suspect]
     Active Substance: ETHIODIZED OIL
     Indication: TRANSCATHETER ARTERIAL CHEMOEMBOLISATION
     Route: 013
     Dates: start: 20161020, end: 20161020
  2. MITOMYCIN. [Concomitant]
     Active Substance: MITOMYCIN
     Route: 013
     Dates: start: 20161020, end: 20161020
  3. DOXORUBICIN HYDROCHLORIDE. [Concomitant]
     Active Substance: DOXORUBICIN HYDROCHLORIDE
     Dates: start: 20161020, end: 20161020

REACTIONS (3)
  - Off label use [Unknown]
  - Post embolisation syndrome [Unknown]
  - Musculoskeletal pain [Unknown]

NARRATIVE: CASE EVENT DATE: 20161020
